FAERS Safety Report 5529358-7 (Version None)
Quarter: 2007Q4

REPORT INFORMATION
  Report Type: 
  Country: None (occurrence: None)
  Receive Date: 20071129
  Receipt Date: 20071119
  Transmission Date: 20080405
  Serious: Yes (Hospitalization)
  Sender: FDA-Public Use
  Company Number: A0691486A

PATIENT
  Age: 49 Year
  Sex: Female
  Weight: 80 kg

DRUGS (3)
  1. LAPATINIB [Suspect]
     Dosage: 750MG TWICE PER DAY
     Route: 048
     Dates: start: 20061028
  2. RIVOTRIL [Concomitant]
     Indication: INSOMNIA
     Dosage: 4DROP PER DAY
     Route: 048
     Dates: start: 20060927
  3. ZOLPIDEM TARTRATE [Concomitant]
     Indication: INSOMNIA
     Dosage: 10MCG PER DAY
     Route: 048
     Dates: start: 20060927

REACTIONS (1)
  - FALL [None]
